FAERS Safety Report 7706170-1 (Version None)
Quarter: 2011Q3

REPORT INFORMATION
  Report Type: 
  Country: None (occurrence: None)
  Receive Date: 20110824
  Receipt Date: 20110818
  Transmission Date: 20111222
  Serious: Yes (Disabling, Other)
  Sender: FDA-Public Use
  Company Number: JP-ALEXION PHARMACEUTICALS INC.-A201100462

PATIENT
  Age: 51 Year
  Sex: Female

DRUGS (3)
  1. RED BLOOD CELLS, CONCENTRATED [Concomitant]
     Dosage: 8 UNITS
     Dates: start: 20100101
  2. PREDNISOLONE [Concomitant]
     Indication: PAROXYSMAL NOCTURNAL HAEMOGLOBINURIA
     Dosage: 10 MG, QD
     Dates: end: 20101014
  3. SOLIRIS [Suspect]
     Indication: PAROXYSMAL NOCTURNAL HAEMOGLOBINURIA
     Dosage: 900 MG, Q2W
     Dates: start: 20100827, end: 20110426

REACTIONS (6)
  - THROMBOSIS [None]
  - MUSCULOSKELETAL STIFFNESS [None]
  - MUSCULOSKELETAL PAIN [None]
  - MYALGIA [None]
  - BONE MARROW TRANSPLANT [None]
  - OEDEMA PERIPHERAL [None]
